FAERS Safety Report 23468381 (Version 4)
Quarter: 2024Q4

REPORT INFORMATION
  Report Type: Report from Study
  Country: CA (occurrence: CA)
  Receive Date: 20240202
  Receipt Date: 20241112
  Transmission Date: 20250115
  Serious: Yes (Death, Other)
  Sender: GENMAB
  Company Number: CA-GENMAB-2024-00285

PATIENT
  Age: 81 Year
  Sex: Male

DRUGS (1)
  1. EPCORITAMAB [Suspect]
     Active Substance: EPCORITAMAB
     Indication: Diffuse large B-cell lymphoma
     Dosage: 48 MG, FREQUENCY TEXT: ON DAYS 15 AND 22 OF CYCLE 1
     Route: 058
     Dates: start: 20240104, end: 20240118

REACTIONS (2)
  - Mass [Fatal]
  - Diffuse large B-cell lymphoma [Fatal]

NARRATIVE: CASE EVENT DATE: 20240101
